FAERS Safety Report 6370113-6 (Version None)
Quarter: 2009Q3

REPORT INFORMATION
  Report Type: 
  Country: None (occurrence: None)
  Receive Date: 20090923
  Receipt Date: 20070920
  Transmission Date: 20100115
  Serious: Yes (Hospitalization)
  Sender: FDA-Public Use
  Company Number: US-ASTRAZENECA-2006UW21430

PATIENT
  Age: 82 Year
  Sex: Male
  Weight: 78 kg

DRUGS (17)
  1. SEROQUEL [Suspect]
     Indication: DEPRESSION
     Route: 048
     Dates: start: 20020101, end: 20060101
  2. SEROQUEL [Suspect]
     Indication: SCHIZOPHRENIA
     Route: 048
     Dates: start: 20020101, end: 20060101
  3. SEROQUEL [Suspect]
     Indication: HALLUCINATION
     Route: 048
     Dates: start: 20020101, end: 20060101
  4. SEROQUEL [Suspect]
     Dosage: 25 - 50 MG
     Route: 048
     Dates: start: 20061229, end: 20060101
  5. SEROQUEL [Suspect]
     Dosage: 25 - 50 MG
     Route: 048
     Dates: start: 20061229, end: 20060101
  6. SEROQUEL [Suspect]
     Dosage: 25 - 50 MG
     Route: 048
     Dates: start: 20061229, end: 20060101
  7. ASPIRIN [Concomitant]
     Dates: start: 20021228
  8. HYDROCHLOROTHIAZIDE [Concomitant]
     Dates: start: 20021228
  9. PEPCID [Concomitant]
     Dates: start: 20021228
  10. ZIAC [Concomitant]
     Dates: start: 20021228
  11. CATAPRES [Concomitant]
     Dates: start: 20021229
  12. PLAVIX [Concomitant]
     Dates: start: 20021229
  13. AMBIEN [Concomitant]
     Dates: start: 20021229
  14. ATIVAN [Concomitant]
     Dates: start: 20021229
  15. TRAZODONE [Concomitant]
     Dosage: 50 - 75 MG
     Dates: start: 20060606
  16. AMITRIPTYLINE [Concomitant]
     Dates: start: 20060606
  17. DIOVAN [Concomitant]
     Dates: start: 20060504

REACTIONS (4)
  - ARTHROPATHY [None]
  - PAIN IN EXTREMITY [None]
  - TYPE 1 DIABETES MELLITUS [None]
  - TYPE 2 DIABETES MELLITUS [None]
